FAERS Safety Report 13010454 (Version 1)
Quarter: 2016Q4

REPORT INFORMATION
  Report Type: Spontaneous
  Country: US (occurrence: US)
  Receive Date: 20161208
  Receipt Date: 20161208
  Transmission Date: 20170207
  Serious: Yes (Death, Hospitalization)
  Sender: FDA-Public Use
  Company Number: None

PATIENT
  Age: 70 Year
  Sex: Female

DRUGS (1)
  1. REVLIMID [Suspect]
     Active Substance: LENALIDOMIDE
     Indication: PLASMA CELL MYELOMA
     Dosage: 25MG DAILY FOR 14 DAYS. ORAL
     Route: 048
     Dates: start: 20130114

REACTIONS (8)
  - Acute kidney injury [None]
  - Multiple organ dysfunction syndrome [None]
  - Acute myocardial infarction [None]
  - Sepsis [None]
  - Fluid overload [None]
  - Pneumonia [None]
  - Depressed level of consciousness [None]
  - Anaemia [None]

NARRATIVE: CASE EVENT DATE: 20130223
